FAERS Safety Report 20838716 (Version 2)
Quarter: 2022Q3

REPORT INFORMATION
  Report Type: Spontaneous
  Country: JP (occurrence: JP)
  Receive Date: 20220517
  Receipt Date: 20220726
  Transmission Date: 20221027
  Serious: Yes (Other)
  Sender: FDA-Public Use
  Company Number: JP-GLAXOSMITHKLINE-JP2022JPN077165

PATIENT

DRUGS (5)
  1. BENLYSTA [Suspect]
     Active Substance: BELIMUMAB
     Indication: Systemic lupus erythematosus
     Dosage: 200 MG, WE
     Dates: start: 20210802
  2. TACROLIMUS [Concomitant]
     Active Substance: TACROLIMUS
     Indication: Systemic lupus erythematosus
     Dosage: 3 MG
  3. AZATHIOPRINE [Concomitant]
     Active Substance: AZATHIOPRINE
     Indication: Systemic lupus erythematosus
     Dosage: 75 MG
  4. PREDNISOLONE [Concomitant]
     Active Substance: PREDNISOLONE
     Indication: Systemic lupus erythematosus
     Dosage: 25 MG
     Dates: start: 20220216, end: 20220310
  5. PREDNISOLONE [Concomitant]
     Active Substance: PREDNISOLONE
     Indication: Pericarditis
     Dosage: 10 MG

REACTIONS (4)
  - Pericarditis [Recovered/Resolved]
  - Disease recurrence [Recovered/Resolved]
  - Systemic lupus erythematosus [Recovered/Resolved]
  - Therapeutic product effect incomplete [Unknown]

NARRATIVE: CASE EVENT DATE: 20220216
